FAERS Safety Report 7770110-X (Version None)
Quarter: 2011Q3

REPORT INFORMATION
  Report Type: 
  Country: None (occurrence: None)
  Receive Date: 20110922
  Receipt Date: 20110911
  Transmission Date: 20111222
  Serious: No
  Sender: FDA-Public Use
  Company Number: US-B.I. PHARMACEUTICALS,INC./RIDGEFIELD-2011-BP-21960BP

PATIENT
  Age: 65 Year
  Sex: Female

DRUGS (4)
  1. METOPROLOL TARTRATE [Concomitant]
     Indication: TACHYCARDIA
     Dosage: 200 MG
     Route: 048
     Dates: start: 20080101
  2. AMLODIPINE [Concomitant]
     Indication: HYPERTENSION
     Dosage: 7.5 MG
     Route: 048
     Dates: start: 20010101
  3. CLONAZEPAM [Concomitant]
     Indication: ANXIETY
     Route: 048
     Dates: start: 20090101
  4. ZANTAC 150 [Suspect]
     Indication: GASTROOESOPHAGEAL REFLUX DISEASE
     Dosage: 300 MG
     Route: 048
     Dates: start: 20110907

REACTIONS (1)
  - DRUG INEFFECTIVE [None]
